FAERS Safety Report 7400166-5 (Version None)
Quarter: 2011Q2

REPORT INFORMATION
  Report Type: 
  Country: None (occurrence: None)
  Receive Date: 20110407
  Receipt Date: 20110325
  Transmission Date: 20111010
  Serious: Yes (Hospitalization)
  Sender: FDA-Public Use
  Company Number: PHHY2011TW00806

PATIENT
  Sex: Female

DRUGS (2)
  1. EXJADE [Suspect]
     Indication: APLASTIC ANAEMIA
     Dosage: 500 MG, UNK
     Route: 048
  2. EXJADE [Suspect]
     Dosage: 625 MG, UNK
     Route: 048

REACTIONS (1)
  - NASOPHARYNGITIS [None]
